FAERS Safety Report 7917140-2 (Version None)
Quarter: 2011Q4

REPORT INFORMATION
  Report Type: 
  Country: None (occurrence: None)
  Receive Date: 20111116
  Receipt Date: 20111109
  Transmission Date: 20120403
  Serious: Yes (Other)
  Sender: FDA-Public Use
  Company Number: US-BAYER-2011-108926

PATIENT
  Age: 64 Year
  Sex: Female
  Weight: 63.492 kg

DRUGS (3)
  1. CARDIZEM [Concomitant]
  2. ASPIRIN [Concomitant]
  3. ALEVE (CAPLET) [Suspect]
     Dosage: TOOK 1320 MG IN LESS THAN 24 HOURS
     Dates: start: 20111108

REACTIONS (3)
  - LOSS OF CONSCIOUSNESS [None]
  - SOMNOLENCE [None]
  - CONFUSIONAL STATE [None]
